FAERS Safety Report 20958025 (Version 7)
Quarter: 2023Q1

REPORT INFORMATION
  Report Type: Report from Study
  Country: AR (occurrence: AR)
  Receive Date: 20220614
  Receipt Date: 20230201
  Transmission Date: 20230418
  Serious: Yes (Hospitalization)
  Sender: FDA-Public Use
  Company Number: AR-PINT-2022-Neratinib-063

PATIENT

DRUGS (10)
  1. NERLYNX [Suspect]
     Active Substance: NERATINIB
     Indication: HER2 positive breast cancer
     Dosage: 240 MG, DAILY
     Route: 048
     Dates: start: 20220501, end: 20220518
  2. NERLYNX [Suspect]
     Active Substance: NERATINIB
     Dosage: 80 MG, DAILY
     Route: 048
     Dates: start: 20220615, end: 20220727
  3. NERLYNX [Suspect]
     Active Substance: NERATINIB
     Dosage: 160 MG, DAILY
     Route: 048
     Dates: start: 20220728
  4. NERLYNX [Suspect]
     Active Substance: NERATINIB
     Dosage: 240 MG, DAILY
     Route: 048
     Dates: start: 20220805, end: 20220825
  5. NERLYNX [Suspect]
     Active Substance: NERATINIB
     Dosage: 200 MG, DAILY
     Route: 048
     Dates: start: 20220826
  6. NERLYNX [Suspect]
     Active Substance: NERATINIB
     Dosage: 200 MG, DAILY
     Route: 048
     Dates: start: 20221203
  7. CAPECITABINE [Concomitant]
     Active Substance: CAPECITABINE
     Indication: Product used for unknown indication
     Dosage: 2 TABLETS ()
     Route: 048
     Dates: start: 20220615
  8. CAPECITABINE [Concomitant]
     Active Substance: CAPECITABINE
     Dosage: 4 PILLS OF CAPECITABINE
     Route: 048
  9. LOPERAMIDE [Concomitant]
     Active Substance: LOPERAMIDE
     Indication: Product used for unknown indication
     Dosage: 3 FIRST DAYS 1 TABLET EVERY 4 HOURS, THEN AFTER 1 TABLET EVERY 6 TO 8 HOURS
     Route: 048
  10. LOPERAMIDE [Concomitant]
     Active Substance: LOPERAMIDE
     Dosage: 1 TABLET
     Route: 048
     Dates: start: 20220615

REACTIONS (12)
  - Blood potassium decreased [Not Recovered/Not Resolved]
  - Anaemia [Unknown]
  - Dehydration [Not Recovered/Not Resolved]
  - Malaise [Unknown]
  - Dry mouth [Unknown]
  - Vomiting [Unknown]
  - Diarrhoea [Recovered/Resolved]
  - Blood sodium decreased [Unknown]
  - Bronchitis [Unknown]
  - General physical health deterioration [Unknown]
  - Nausea [Unknown]
  - Weight decreased [Unknown]

NARRATIVE: CASE EVENT DATE: 20220511
